FAERS Safety Report 5777524-8 (Version None)
Quarter: 2008Q2

REPORT INFORMATION
  Report Type: 
  Country: None (occurrence: None)
  Receive Date: 20080618
  Receipt Date: 20080610
  Transmission Date: 20081010
  Serious: Yes (Life-Threatening, Hospitalization)
  Sender: FDA-Public Use
  Company Number: GR-AMGEN-UK281400

PATIENT
  Age: 79 Year
  Sex: Male
  Weight: 85 kg

DRUGS (9)
  1. VECTIBIX [Suspect]
     Indication: COLORECTAL CANCER
     Route: 042
     Dates: start: 20080501
  2. FLUOROURACIL [Suspect]
     Route: 042
  3. ELOXATIN (SANOFI) [Concomitant]
     Route: 042
  4. FOLINIC ACID [Concomitant]
     Route: 042
  5. SALOSPIR [Concomitant]
  6. PLAVIX [Concomitant]
  7. RAMIPRIL [Concomitant]
  8. CRESTOR [Concomitant]
  9. OMEPRAZOLE [Concomitant]

REACTIONS (1)
  - ACUTE CORONARY SYNDROME [None]
